FAERS Safety Report 8267853-0 (Version None)
Quarter: 2012Q2

REPORT INFORMATION
  Report Type: 
  Country: None (occurrence: None)
  Receive Date: 20120409
  Receipt Date: 20120330
  Transmission Date: 20120825
  Serious: Yes (Other)
  Sender: FDA-Public Use
  Company Number: US-BAYER-2012-031544

PATIENT
  Age: 49 Year
  Sex: Female

DRUGS (1)
  1. YASMIN [Suspect]
     Dosage: UNK
     Dates: start: 20050101, end: 20060901

REACTIONS (3)
  - DEEP VEIN THROMBOSIS [None]
  - THROMBOSIS [None]
  - CEREBROVASCULAR ACCIDENT [None]
